FAERS Safety Report 9526403 (Version 2)
Quarter: 2013Q3

REPORT INFORMATION
  Report Type: Report from Study
  Country: JP (occurrence: JP)
  Receive Date: 20130916
  Receipt Date: 20130916
  Transmission Date: 20140515
  Serious: Yes (Death, Other)
  Sender: FDA-Public Use
  Company Number: JP-TAKEDA-TCI2013A04448

PATIENT
  Age: 75 Year
  Sex: Female

DRUGS (7)
  1. RAMELTEON [Suspect]
     Indication: INSOMNIA
     Route: 048
     Dates: start: 20120928, end: 20130303
  2. TAKEPRON OD TABLETS 15 [Concomitant]
     Route: 048
     Dates: end: 20130303
  3. MAGMITT [Concomitant]
     Route: 048
     Dates: end: 20130303
  4. PROMAC D [Concomitant]
     Route: 048
     Dates: end: 20130303
  5. WYPAX [Concomitant]
     Route: 048
     Dates: end: 20130303
  6. DEPROMEL [Concomitant]
     Route: 048
     Dates: end: 20130303
  7. ROZEREM [Suspect]
     Indication: INSOMNIA
     Route: 048
     Dates: start: 20120928, end: 20130326

REACTIONS (2)
  - Death [Fatal]
  - Plasma cell myeloma [Fatal]
